FAERS Safety Report 21476742 (Version 1)
Quarter: 2022Q4

REPORT INFORMATION
  Report Type: Spontaneous
  Country: GB (occurrence: GB)
  Receive Date: 20221019
  Receipt Date: 20221019
  Transmission Date: 20230113
  Serious: Yes (Other)
  Sender: FDA-Public Use
  Company Number: GB-MHRA-MED-202210121336266770-BSHMT

PATIENT
  Age: 75 Year
  Sex: Female

DRUGS (2)
  1. OPSUMIT [Suspect]
     Active Substance: MACITENTAN
     Indication: Pulmonary hypertension
     Dosage: 10MG ONCE A DAY
     Route: 048
     Dates: start: 20160401
  2. TADALAFIL [Suspect]
     Active Substance: TADALAFIL
     Indication: Pulmonary hypertension
     Dosage: 20MG 2 PER DAY
     Route: 065
     Dates: start: 20160401

REACTIONS (1)
  - Dyspnoea [Unknown]
